FAERS Safety Report 20516603 (Version 1)
Quarter: 2022Q1

REPORT INFORMATION
  Report Type: Report from Study
  Country: AU (occurrence: AU)
  Receive Date: 20220225
  Receipt Date: 20220225
  Transmission Date: 20220423
  Serious: Yes (Hospitalization)
  Sender: FDA-Public Use
  Company Number: AU-ABBVIE-22K-008-4292135-00

PATIENT
  Age: 42 Year
  Sex: Female
  Weight: 74.4 kg

DRUGS (14)
  1. RINVOQ [Suspect]
     Active Substance: UPADACITINIB
     Indication: Rheumatoid arthritis
     Route: 048
  2. LIDOCAINE [Concomitant]
     Active Substance: LIDOCAINE
     Indication: Pyrexia
     Dosage: 2 PERCENT GEL
     Route: 061
     Dates: start: 20211230, end: 20220115
  3. LIDOCAINE [Concomitant]
     Active Substance: LIDOCAINE
     Indication: Urinary tract infection
  4. METRONIDAZOLE [Concomitant]
     Active Substance: METRONIDAZOLE
     Indication: Pyrexia
     Route: 048
     Dates: start: 20211230, end: 20220115
  5. METRONIDAZOLE [Concomitant]
     Active Substance: METRONIDAZOLE
     Indication: Urinary tract infection
  6. CEPHALEXIN [Concomitant]
     Active Substance: CEPHALEXIN
     Indication: Pyrexia
     Route: 048
     Dates: start: 20211230, end: 20220115
  7. CEPHALEXIN [Concomitant]
     Active Substance: CEPHALEXIN
     Indication: Urinary tract infection
  8. FLUCONAZOLE [Concomitant]
     Active Substance: FLUCONAZOLE
     Indication: Pyrexia
     Route: 048
     Dates: start: 20211230, end: 20220115
  9. FLUCONAZOLE [Concomitant]
     Active Substance: FLUCONAZOLE
     Indication: Urinary tract infection
  10. ACYCLOVIR [Concomitant]
     Active Substance: ACYCLOVIR
     Indication: Pyrexia
     Route: 048
     Dates: start: 20211230, end: 20220115
  11. ACYCLOVIR [Concomitant]
     Active Substance: ACYCLOVIR
     Indication: Urinary tract infection
  12. ASTRAZENECA COVID-19 VACCINE [Concomitant]
     Active Substance: AZD-1222
     Indication: COVID-19 immunisation
     Dosage: 1 DOSE
     Route: 030
     Dates: start: 20210828, end: 20210828
  13. ASTRAZENECA COVID-19 VACCINE [Concomitant]
     Active Substance: AZD-1222
     Dosage: COVID-19 ASTRAZENECA DOSE 2
     Route: 030
     Dates: start: 20210928, end: 20210928
  14. PFIZER-BIONTECH COVID-19 VACCINE [Concomitant]
     Active Substance: TOZINAMERAN
     Indication: COVID-19 immunisation
     Dosage: BOOSTER DOSE
     Route: 030
     Dates: start: 20211223, end: 20211223

REACTIONS (2)
  - Urinary tract infection [Recovered/Resolved]
  - Pyrexia [Recovered/Resolved]

NARRATIVE: CASE EVENT DATE: 20211227
